FAERS Safety Report 7713951-7 (Version None)
Quarter: 2011Q3

REPORT INFORMATION
  Report Type: 
  Country: None (occurrence: None)
  Receive Date: 20110826
  Receipt Date: 20110822
  Transmission Date: 20111222
  Serious: Yes (Hospitalization)
  Sender: FDA-Public Use
  Company Number: US-ALLERGAN-1105699US

PATIENT
  Age: 88 Year
  Sex: Female
  Weight: 73.469 kg

DRUGS (3)
  1. OXYCONTIN [Concomitant]
  2. PREVACID [Concomitant]
  3. SANCTURA [Suspect]
     Indication: INCONTINENCE
     Dosage: 60 MG, SINGLE
     Route: 048
     Dates: start: 20110119, end: 20110119

REACTIONS (5)
  - UNRESPONSIVE TO STIMULI [None]
  - DEHYDRATION [None]
  - PNEUMONIA ASPIRATION [None]
  - ASTHENIA [None]
  - VOMITING [None]
